FAERS Safety Report 5259164-2 (Version None)
Quarter: 2007Q1

REPORT INFORMATION
  Report Type: 
  Country: None (occurrence: None)
  Receive Date: 20070308
  Receipt Date: 20070227
  Transmission Date: 20070707
  Serious: Yes (Other)
  Sender: FDA-Public Use
  Company Number: CA-ELI_LILLY_AND_COMPANY-CA200702005710

PATIENT
  Age: 97 Year
  Sex: Female

DRUGS (9)
  1. FORTEO [Suspect]
     Indication: OSTEOPOROSIS
     Dosage: 20 UG, DAILY (1/D)
     Route: 058
     Dates: start: 20051110
  2. COZAAR [Concomitant]
  3. LANOXIN [Concomitant]
  4. WARFARIN SODIUM [Concomitant]
  5. LASIX [Concomitant]
  6. CALCIUM [Concomitant]
  7. VITAMIN B-12 [Concomitant]
     Route: 058
  8. VITAMIN D [Concomitant]
  9. SYNTHROID [Concomitant]

REACTIONS (2)
  - ATRIAL FIBRILLATION [None]
  - DYSPNOEA [None]
